FAERS Safety Report 8494907 (Version 4)
Quarter: 2012Q4

REPORT INFORMATION
  Report Type: 
  Country: RU (occurrence: RU)
  Receive Date: 20120405
  Receipt Date: 20121031
  Transmission Date: 20130627
  Serious: Yes (Hospitalization, Other)
  Sender: FDA-Public Use
  Company Number: RU-AMGEN-RUSSP2012020919

PATIENT
  Age: 7 Month
  Sex: Male
  Weight: 3.1 kg

DRUGS (4)
  1. NPLATE [Suspect]
     Dosage: 1 mug/kg, UNK
     Route: 064
     Dates: start: 201102, end: 201112
  2. BCG [Concomitant]
  3. IRON [Concomitant]
     Route: 064
  4. PREDNISOLONE [Concomitant]
     Dosage: 40 mg, qd
     Route: 064
     Dates: start: 201203

REACTIONS (16)
  - Skin haemorrhage [Unknown]
  - Cardiac disorder [Unknown]
  - Dystonia [Unknown]
  - Depressed level of consciousness [Unknown]
  - Thrombocytopenia [Recovered/Resolved]
  - Cerebral ischaemia [Recovered/Resolved]
  - Omphalitis [Recovered/Resolved]
  - Bradycardia [Unknown]
  - Urinary tract infection fungal [Unknown]
  - Oral candidiasis [Unknown]
  - Oral fungal infection [Recovered/Resolved]
  - Conjunctivitis [Unknown]
  - Respiratory disorder [Unknown]
  - Rhinitis [Unknown]
  - Cough [Unknown]
  - Lymphadenitis [Unknown]
